FAERS Safety Report 19249470 (Version 1)
Quarter: 2021Q2

REPORT INFORMATION
  Report Type: Spontaneous
  Country: FR (occurrence: FR)
  Receive Date: 20210512
  Receipt Date: 20210512
  Transmission Date: 20210717
  Serious: Yes (Other)
  Sender: FDA-Public Use
  Company Number: FR-BAYER-2021-119596

PATIENT
  Age: 74 Year
  Sex: Female
  Weight: 100 kg

DRUGS (2)
  1. GADOVIST [Suspect]
     Active Substance: GADOBUTROL
     Indication: MAGNETIC RESONANCE IMAGING ABDOMINAL
  2. GADOVIST [Suspect]
     Active Substance: GADOBUTROL
     Indication: INTERMENSTRUAL BLEEDING
     Dosage: 7.5 ML, ONCE
     Route: 042
     Dates: start: 20210408, end: 20210408

REACTIONS (3)
  - Eye oedema [Not Recovered/Not Resolved]
  - Cough [Recovered/Resolved]
  - Laryngeal discomfort [Recovered/Resolved]

NARRATIVE: CASE EVENT DATE: 20210408
